FAERS Safety Report 4654252-3 (Version None)
Quarter: 2005Q2

REPORT INFORMATION
  Report Type: 
  Country: None (occurrence: None)
  Receive Date: 20050504
  Receipt Date: 20050421
  Transmission Date: 20051028
  Serious: Yes (Hospitalization, Other)
  Sender: FDA-Public Use
  Company Number: 2005064272

PATIENT
  Age: 74 Year
  Sex: Female
  Weight: 63.5036 kg

DRUGS (4)
  1. BEXTRA [Suspect]
     Indication: ARTHRITIS
     Dosage: (1 IN 1 D), ORAL
     Route: 048
     Dates: end: 20040701
  2. ROSUVASTATIN (ROSUVASTATIN) [Suspect]
     Indication: ILL-DEFINED DISORDER
     Dosage: ORAL
     Route: 048
     Dates: end: 20040701
  3. FLUOXETINE HCL [Concomitant]
  4. TEMAZEPAM [Concomitant]

REACTIONS (6)
  - ASTHENIA [None]
  - BLOOD POTASSIUM ABNORMAL [None]
  - BONE DENSITY DECREASED [None]
  - HEPATIC FAILURE [None]
  - KIDNEY INFECTION [None]
  - RENAL FAILURE [None]
